FAERS Safety Report 11423891 (Version 1)
Quarter: 2015Q3

REPORT INFORMATION
  Report Type: Spontaneous
  Country: US (occurrence: US)
  Receive Date: 20150827
  Receipt Date: 20150827
  Transmission Date: 20151125
  Serious: No
  Sender: FDA-Public Use
  Company Number: US-JNJFOC-20150206782

PATIENT
  Age: 61 Year
  Sex: Female
  Weight: 68.04 kg

DRUGS (3)
  1. CHILDRENS MOTRIN [Suspect]
     Active Substance: IBUPROFEN
     Route: 048
  2. CHILDRENS MOTRIN [Suspect]
     Active Substance: IBUPROFEN
     Indication: CARTILAGE INJURY
     Route: 048
     Dates: start: 20150130
  3. TYLENOL EXTRA STRENGTH CHERRY [Concomitant]
     Indication: CARTILAGE INJURY
     Route: 065

REACTIONS (2)
  - Wrong patient received medication [Unknown]
  - Product use issue [Unknown]
